FAERS Safety Report 17593251 (Version 3)
Quarter: 2020Q3

REPORT INFORMATION
  Report Type: Spontaneous
  Country: US (occurrence: US)
  Receive Date: 20200327
  Receipt Date: 20200909
  Transmission Date: 20201102
  Serious: Yes (Hospitalization, Disabling, Other)
  Sender: FDA-Public Use
  Company Number: US-ASTRAZENECA-2020SE40445

PATIENT
  Age: 37 Year
  Sex: Male
  Weight: 86.2 kg

DRUGS (78)
  1. NEXIUM [Suspect]
     Active Substance: ESOMEPRAZOLE MAGNESIUM
     Indication: DYSPEPSIA
     Dosage: DAILY
     Route: 048
     Dates: start: 2000, end: 2015
  2. DOXAZOSIN [Concomitant]
     Active Substance: DOXAZOSIN MESYLATE
     Indication: MUSCLE RELAXANT THERAPY
     Route: 065
     Dates: start: 2012
  3. FUROSEMIDE. [Concomitant]
     Active Substance: FUROSEMIDE
     Indication: OEDEMA
     Route: 065
     Dates: start: 2011
  4. ATORVASTATIN [Concomitant]
     Active Substance: ATORVASTATIN
     Route: 048
  5. CITRIC ACID [Concomitant]
     Active Substance: CITRIC ACID MONOHYDRATE
  6. CALCIUM PANTOTHENATE [Concomitant]
     Active Substance: CALCIUM PANTOTHENATE
  7. CINACALCET. [Concomitant]
     Active Substance: CINACALCET
     Route: 048
  8. FOLIC ACID. [Concomitant]
     Active Substance: FOLIC ACID
     Route: 048
  9. METOPROLOL SUCCINATE. [Concomitant]
     Active Substance: METOPROLOL SUCCINATE
     Route: 048
  10. MINOXIDIL. [Concomitant]
     Active Substance: MINOXIDIL
     Route: 048
  11. NICOTINE. [Concomitant]
     Active Substance: NICOTINE
  12. LAXATIVE [Concomitant]
     Active Substance: UNSPECIFIED INGREDIENT
  13. COUGHMETAN [Concomitant]
  14. NEXIUM [Suspect]
     Active Substance: ESOMEPRAZOLE MAGNESIUM
     Indication: GASTROOESOPHAGEAL REFLUX DISEASE
     Dosage: DAILY
     Route: 048
     Dates: start: 2000, end: 2015
  15. PRILOSEC [Suspect]
     Active Substance: OMEPRAZOLE MAGNESIUM
     Indication: DYSPEPSIA
     Route: 048
  16. NORCO [Concomitant]
     Active Substance: ACETAMINOPHEN\HYDROCODONE BITARTRATE
     Route: 048
  17. CATAPRES [Concomitant]
     Active Substance: CLONIDINE HYDROCHLORIDE
  18. BENAZEPRIL [Concomitant]
     Active Substance: BENAZEPRIL HYDROCHLORIDE
  19. PENICILLIN VK [Concomitant]
     Active Substance: PENICILLIN V POTASSIUM
  20. TRAMADOL. [Concomitant]
     Active Substance: TRAMADOL
  21. LIDOCAINE. [Concomitant]
     Active Substance: LIDOCAINE
  22. BUMETANIDE. [Concomitant]
     Active Substance: BUMETANIDE
  23. NEXIUM [Suspect]
     Active Substance: ESOMEPRAZOLE MAGNESIUM
     Indication: GASTROOESOPHAGEAL REFLUX DISEASE
     Route: 048
     Dates: start: 2000
  24. NEXIUM [Suspect]
     Active Substance: ESOMEPRAZOLE MAGNESIUM
     Indication: DYSPEPSIA
     Route: 048
     Dates: start: 2000
  25. FENOFIBRATE. [Concomitant]
     Active Substance: FENOFIBRATE
     Route: 048
  26. ASPIRIN. [Concomitant]
     Active Substance: ASPIRIN
     Route: 048
  27. SODIUM CITRATE. [Concomitant]
     Active Substance: SODIUM CITRATE
  28. CAPTOPRIL. [Concomitant]
     Active Substance: CAPTOPRIL
  29. CARDIZEM [Concomitant]
     Active Substance: DILTIAZEM HYDROCHLORIDE
  30. HUMULIN NOS [Concomitant]
     Active Substance: INSULIN HUMAN
  31. PRILOSEC [Suspect]
     Active Substance: OMEPRAZOLE MAGNESIUM
     Indication: GASTROOESOPHAGEAL REFLUX DISEASE
     Dosage: GENERIC DAILY
     Route: 065
     Dates: start: 2000
  32. PRILOSEC [Suspect]
     Active Substance: OMEPRAZOLE MAGNESIUM
     Indication: GASTROOESOPHAGEAL REFLUX DISEASE
     Dosage: GENERIC
     Route: 048
     Dates: start: 20140801
  33. PRILOSEC [Suspect]
     Active Substance: OMEPRAZOLE MAGNESIUM
     Indication: DYSPEPSIA
     Dosage: GENERIC
     Route: 048
     Dates: start: 20140801
  34. BROMOCRIPTINE [Concomitant]
     Active Substance: BROMOCRIPTINE
     Route: 048
  35. SODIUM BICARBONATE. [Concomitant]
     Active Substance: SODIUM BICARBONATE
     Route: 048
  36. HYDROCHLOROTHIAZIDE. [Concomitant]
     Active Substance: HYDROCHLOROTHIAZIDE
  37. AMOXICILLIN. [Concomitant]
     Active Substance: AMOXICILLIN
  38. COLACE [Concomitant]
     Active Substance: DOCUSATE SODIUM
  39. MAGNESIUM OXIDE. [Concomitant]
     Active Substance: MAGNESIUM OXIDE
  40. CALCIUM GLUCONATE. [Concomitant]
     Active Substance: CALCIUM GLUCONATE
  41. BACLOFEN. [Concomitant]
     Active Substance: BACLOFEN
     Indication: MUSCLE RELAXANT THERAPY
     Route: 065
     Dates: start: 2012
  42. VITAMIN B [Concomitant]
     Active Substance: VITAMIN B
     Indication: HYPOVITAMINOSIS
     Route: 065
     Dates: start: 2011
  43. LANTHANUM [Concomitant]
     Active Substance: LANTHANUM
     Route: 048
  44. FERROUS SULFATE. [Concomitant]
     Active Substance: FERROUS SULFATE
  45. RENA?VITE [Concomitant]
     Active Substance: ASCORBIC ACID\BIOTIN\CALCIUM PANTOTHENATE\CYANOCOBALAMIN\FOLIC ACID\NIACINAMIDE\PYRIDOXINE HYDROCHLORIDE\RIBOFLAVIN\THIAMINE MONONITRATE
  46. AARANE [Concomitant]
     Active Substance: CROMOLYN SODIUM
  47. APAP/CODEINE [Concomitant]
     Active Substance: ACETAMINOPHEN\CODEINE PHOSPHATE
  48. EPINEPHRINE. [Concomitant]
     Active Substance: EPINEPHRINE
  49. BENADRYL [Concomitant]
     Active Substance: DIPHENHYDRAMINE HYDROCHLORIDE
  50. METANEURON [Concomitant]
  51. INMETAN [Concomitant]
  52. DIAZEPAM. [Concomitant]
     Active Substance: DIAZEPAM
  53. TESTOSTERONE. [Concomitant]
     Active Substance: TESTOSTERONE
  54. DEXTROSE. [Concomitant]
     Active Substance: DEXTROSE
  55. PARLODEL [Concomitant]
     Active Substance: BROMOCRIPTINE MESYLATE
  56. FERRIC CITRATE [Concomitant]
     Active Substance: TETRAFERRIC TRICITRATE DECAHYDRATE
  57. PRILOSEC [Suspect]
     Active Substance: OMEPRAZOLE MAGNESIUM
     Indication: GASTROOESOPHAGEAL REFLUX DISEASE
     Route: 048
  58. FLUDROCORTISONE [Concomitant]
     Active Substance: FLUDROCORTISONE
     Route: 048
  59. SIMVASTATIN. [Concomitant]
     Active Substance: SIMVASTATIN
  60. CALCIUM ACETATE. [Concomitant]
     Active Substance: CALCIUM ACETATE
  61. FLUTICASONE. [Concomitant]
     Active Substance: FLUTICASONE
  62. IBUPROFEN. [Concomitant]
     Active Substance: IBUPROFEN
  63. SHINMETANE [Concomitant]
  64. SUMETANIN [Concomitant]
  65. LYSINE HYDROCHLORIDE [Concomitant]
     Active Substance: LYSINE HYDROCHLORIDE
  66. COLCHICINE. [Concomitant]
     Active Substance: COLCHICINE
  67. DOPAMINE [Concomitant]
     Active Substance: DOPAMINE HYDROCHLORIDE
  68. PRILOSEC [Suspect]
     Active Substance: OMEPRAZOLE MAGNESIUM
     Indication: DYSPEPSIA
     Dosage: GENERIC DAILY
     Route: 065
     Dates: start: 2000
  69. CLONIDINE HCL [Concomitant]
     Active Substance: CLONIDINE HYDROCHLORIDE
     Route: 048
  70. NIFEDIPINE. [Concomitant]
     Active Substance: NIFEDIPINE
     Route: 048
  71. SERTRALINE [Concomitant]
     Active Substance: SERTRALINE HYDROCHLORIDE
     Route: 048
  72. SEVELAMER HYDROCHLORIDE. [Concomitant]
     Active Substance: SEVELAMER HYDROCHLORIDE
     Route: 048
  73. LOSARTAN. [Concomitant]
     Active Substance: LOSARTAN
  74. OXYBUTYNIN. [Concomitant]
     Active Substance: OXYBUTYNIN CHLORIDE
  75. AMILORIDE+BUMETANIDE [Concomitant]
  76. KAYEXALATE [Concomitant]
     Active Substance: SODIUM POLYSTYRENE SULFONATE
  77. FLORINEF ACETATE [Concomitant]
     Active Substance: FLUDROCORTISONE ACETATE
  78. VITAMIN B COMPLEX [Concomitant]
     Active Substance: CYANOCOBALAMIN\DEXPANTHENOL\NIACINAMIDE\PYRIDOXINE HYDROCHLORIDE\RIBOFLAVIN 5^-PHOSPHATE SODIUM\THIAMINE HYDROCHLORIDE\VITAMIN B COMPLEX

REACTIONS (8)
  - Oedema [Unknown]
  - Chronic kidney disease [Not Recovered/Not Resolved]
  - Renal failure [Unknown]
  - Hypocalcaemia [Unknown]
  - Hyperkalaemia [Unknown]
  - Nephrogenic anaemia [Unknown]
  - End stage renal disease [Unknown]
  - Acute kidney injury [Unknown]

NARRATIVE: CASE EVENT DATE: 2009
